FAERS Safety Report 5661778-2 (Version None)
Quarter: 2008Q1

REPORT INFORMATION
  Report Type: 
  Country: None (occurrence: None)
  Receive Date: 20080312
  Receipt Date: 20080303
  Transmission Date: 20080703
  Serious: Yes (Hospitalization)
  Sender: FDA-Public Use
  Company Number: BE-JNJFOC-20080206190

PATIENT
  Age: 82 Year
  Sex: Female

DRUGS (4)
  1. DURAGESIC-100 [Suspect]
     Indication: DRUG USE FOR UNKNOWN INDICATION
     Route: 062
  2. CIPROFLOXACIN [Interacting]
     Indication: DRUG USE FOR UNKNOWN INDICATION
     Dosage: 2X 500MG
     Route: 048
  3. GLAZIDIM [Concomitant]
     Route: 042
  4. MORPHINE [Concomitant]
     Route: 065

REACTIONS (2)
  - DELIRIUM [None]
  - DRUG INTERACTION [None]
